FAERS Safety Report 7571909-5 (Version None)
Quarter: 2011Q2

REPORT INFORMATION
  Report Type: 
  Country: None (occurrence: None)
  Receive Date: 20110624
  Receipt Date: 20101008
  Transmission Date: 20111010
  Serious: No
  Sender: FDA-Public Use
  Company Number: A0885650A

PATIENT
  Age: 4 Year
  Sex: Male

DRUGS (2)
  1. VERAMYST [Suspect]
     Route: 045
  2. NO CONCURRENT MEDICATION [Concomitant]

REACTIONS (1)
  - BLISTER [None]
